FAERS Safety Report 20607137 (Version 1)
Quarter: 2022Q1

REPORT INFORMATION
  Report Type: Spontaneous
  Country: None (occurrence: US)
  Receive Date: 20220317
  Receipt Date: 20220317
  Transmission Date: 20220424
  Serious: Yes (Other)
  Sender: FDA-Public Use
  Company Number: US-MLV Pharma LLC-2126880

PATIENT
  Age: 53 Year
  Sex: Female

DRUGS (3)
  1. METHOCARBAMOL [Suspect]
     Active Substance: METHOCARBAMOL
     Indication: Arthralgia
     Route: 065
  2. BETAMETHASONE [Suspect]
     Active Substance: BETAMETHASONE
     Route: 065
  3. INDOMETHACIN [Suspect]
     Active Substance: INDOMETHACIN
     Route: 048

REACTIONS (3)
  - Erythema [Recovered/Resolved]
  - Scedosporium infection [Recovered/Resolved]
  - Pseudallescheria infection [Recovered/Resolved]
